FAERS Safety Report 7707792-4 (Version None)
Quarter: 2011Q3

REPORT INFORMATION
  Report Type: 
  Country: None (occurrence: None)
  Receive Date: 20110824
  Receipt Date: 20110817
  Transmission Date: 20111222
  Serious: Yes (Hospitalization, Disabling, Other)
  Sender: FDA-Public Use
  Company Number: US-B.I. PHARMACEUTICALS,INC./RIDGEFIELD-2011-BP-18626BP

PATIENT
  Age: 74 Year
  Sex: Male

DRUGS (9)
  1. LASIX [Concomitant]
     Dosage: 40 MG
  2. SIMVASTATIN [Concomitant]
     Dosage: 20 MG
  3. PRADAXA [Suspect]
     Indication: ATRIAL FIBRILLATION
     Dosage: 300 MG
     Dates: start: 20110110, end: 20110401
  4. GLYBURIDE [Concomitant]
     Dosage: 5 MG
  5. ALLOPURINOL [Concomitant]
     Dosage: 30 MG
  6. COREG [Concomitant]
     Dosage: 50 MG
  7. HYDRALAZINE HCL [Concomitant]
     Dosage: 100 MG
  8. DIGOXIN [Concomitant]
     Dosage: 0.125 MG
  9. COLCHICINE [Concomitant]
     Dosage: 1.2 MG

REACTIONS (2)
  - DEEP VEIN THROMBOSIS [None]
  - OEDEMA PERIPHERAL [None]
